FAERS Safety Report 20767490 (Version 2)
Quarter: 2022Q2

REPORT INFORMATION
  Report Type: Spontaneous
  Country: US (occurrence: US)
  Receive Date: 20220429
  Receipt Date: 20220504
  Transmission Date: 20220720
  Serious: No
  Sender: FDA-Public Use
  Company Number: US-SA-SAC20220428000306

PATIENT
  Sex: Male

DRUGS (1)
  1. DUPIXENT [Suspect]
     Active Substance: DUPILUMAB
     Indication: Dermatitis atopic
     Dosage: 300 MG, QOW
     Route: 058
     Dates: start: 20211215

REACTIONS (9)
  - Eczema eyelids [Unknown]
  - Discomfort [Not Recovered/Not Resolved]
  - Sleep disorder [Unknown]
  - Erythema [Unknown]
  - Rash [Not Recovered/Not Resolved]
  - Eye pruritus [Unknown]
  - Dermatitis atopic [Not Recovered/Not Resolved]
  - Condition aggravated [Not Recovered/Not Resolved]
  - Product dose omission issue [Unknown]
